FAERS Safety Report 13002429 (Version 3)
Quarter: 2016Q4

REPORT INFORMATION
  Report Type: Report from Study
  Country: JP (occurrence: JP)
  Receive Date: 20161206
  Receipt Date: 20161223
  Transmission Date: 20170207
  Serious: Yes (Hospitalization)
  Sender: FDA-Public Use
  Company Number: JP-KADMON PHARMACEUTICALS, LLC-KAD201612-004401

PATIENT
  Age: 52 Year
  Sex: Female
  Weight: 43.4 kg

DRUGS (16)
  1. SOFOSBUVIR 400 MG [Suspect]
     Active Substance: SOFOSBUVIR
     Indication: CHRONIC HEPATITIS C
     Dosage: TABLET
     Route: 048
     Dates: start: 20160621, end: 20160913
  2. DRAMAMINE [Concomitant]
     Active Substance: DIMENHYDRINATE
     Indication: MENIERE^S DISEASE
     Route: 048
     Dates: start: 2003
  3. LENDORMIN [Concomitant]
     Active Substance: BROTIZOLAM
     Indication: ANXIETY
     Route: 048
     Dates: start: 2003
  4. FLORID [Concomitant]
     Active Substance: MICONAZOLE
     Indication: GLOSSITIS
  5. MERISLON [Concomitant]
     Active Substance: BETAHISTINE MESILATE
     Indication: MENIERE^S DISEASE
     Route: 048
     Dates: start: 2003
  6. URSO [Concomitant]
     Active Substance: URSODIOL
     Indication: HEPATITIS C
     Route: 048
     Dates: start: 2003
  7. PULMICORT TURBUHALER [Concomitant]
     Active Substance: BUDESONIDE
     Indication: ASTHMA
     Dates: start: 2003
  8. RIBAVIRIN. [Suspect]
     Active Substance: RIBAVIRIN
     Indication: CHRONIC HEPATITIS C
     Dosage: CAPSULE; TOTAL DAILY DOSE 600 MG DIVIDED TWICE DAILY
     Route: 048
     Dates: start: 20160621, end: 20160913
  9. BLOPRESS [Concomitant]
     Active Substance: CANDESARTAN CILEXETIL
     Indication: HYPERTENSION
     Route: 048
     Dates: start: 2003
  10. MUCODYNE [Concomitant]
     Active Substance: CARBOCYSTEINE
     Indication: ASTHMA
     Route: 048
     Dates: start: 2003
  11. VALACICLOVIR [Concomitant]
     Active Substance: VALACYCLOVIR HYDROCHLORIDE
     Indication: HERPES ZOSTER
     Route: 048
     Dates: start: 20160902, end: 20160913
  12. MEYLON [Concomitant]
     Active Substance: SODIUM BICARBONATE
     Indication: MENIERE^S DISEASE
     Dates: start: 20160927, end: 20160927
  13. CONSTAN [Concomitant]
     Active Substance: ALPRAZOLAM
     Indication: ANXIETY
     Route: 048
     Dates: start: 2003
  14. MIGSIS [Concomitant]
     Active Substance: LOMERIZINE HYDROCHLORIDE
     Indication: MIGRAINE
     Route: 048
     Dates: start: 201512
  15. FLORID [Concomitant]
     Active Substance: MICONAZOLE
     Indication: STOMATITIS
     Route: 048
     Dates: start: 20160816, end: 20160915
  16. MEYLON [Concomitant]
     Active Substance: SODIUM BICARBONATE
     Dates: start: 20161011, end: 20161011

REACTIONS (1)
  - Castleman^s disease [Not Recovered/Not Resolved]

NARRATIVE: CASE EVENT DATE: 20160915
